FAERS Safety Report 4602739-1 (Version None)
Quarter: 2005Q1

REPORT INFORMATION
  Report Type: 
  Country: None (occurrence: None)
  Receive Date: 20050309
  Receipt Date: 20050209
  Transmission Date: 20050727
  Serious: Yes (Hospitalization)
  Sender: FDA-Public Use
  Company Number: US-MERCK-0502USA01015

PATIENT
  Age: 78 Year
  Sex: Male

DRUGS (1)
  1. ZOCOR [Suspect]
     Route: 048
     Dates: end: 20050207

REACTIONS (4)
  - FALL [None]
  - RENAL FAILURE [None]
  - RHABDOMYOLYSIS [None]
  - TRANSIENT ISCHAEMIC ATTACK [None]
